FAERS Safety Report 24699327 (Version 2)
Quarter: 2024Q4

REPORT INFORMATION
  Report Type: Spontaneous
  Country: JP (occurrence: JP)
  Receive Date: 20241205
  Receipt Date: 20241223
  Transmission Date: 20250115
  Serious: Yes (Other)
  Sender: SANOFI AVENTIS
  Company Number: JP-SA-2024SA203145

PATIENT
  Age: 55 Year
  Sex: Male

DRUGS (1)
  1. DUPIXENT [Suspect]
     Active Substance: DUPILUMAB
     Indication: Chronic rhinosinusitis with nasal polyps
     Dosage: 300 MG/DAY, TWICE EVERY 4 WEEKS
     Route: 058
     Dates: start: 202103, end: 20240701

REACTIONS (5)
  - Neuropathy peripheral [Recovered/Resolved]
  - Tremor [Recovered/Resolved]
  - Hypoaesthesia [Recovered/Resolved]
  - Flushing [Recovering/Resolving]
  - Eosinophil count increased [Recovering/Resolving]

NARRATIVE: CASE EVENT DATE: 20240101
